FAERS Safety Report 25904049 (Version 2)
Quarter: 2025Q4

REPORT INFORMATION
  Report Type: Spontaneous
  Country: EU (occurrence: EU)
  Receive Date: 20251010
  Receipt Date: 20251020
  Transmission Date: 20260118
  Serious: Yes (Death)
  Sender: ROCHE
  Company Number: None

PATIENT

DRUGS (5)
  1. RITUXIMAB [Suspect]
     Active Substance: RITUXIMAB
     Indication: Mantle cell lymphoma
     Dosage: 375 MG/M2 (ON DAY 1) EVERY 4 WEEKS FOR UP TO SIX CYCLES
     Route: 042
  2. VENETOCLAX [Suspect]
     Active Substance: VENETOCLAX
     Indication: Mantle cell lymphoma
     Route: 048
  3. VENETOCLAX [Suspect]
     Active Substance: VENETOCLAX
     Route: 048
  4. BENDAMUSTINE HYDROCHLORIDE [Suspect]
     Active Substance: BENDAMUSTINE HYDROCHLORIDE
     Indication: Mantle cell lymphoma
     Dosage: 70 MG/M2 (ON DAYS 1 AND 2) EVERY 4 WEEKS FOR UP TO SIX CYCLES
     Route: 042
  5. CYTARABINE [Suspect]
     Active Substance: CYTARABINE
     Indication: Mantle cell lymphoma
     Dosage: 500 MG/M2 (ON DAYS 1, 2, AND 3) EVERY 4 WEEKS FOR UP TO SIX CYCLES
     Route: 042

REACTIONS (2)
  - Tumour lysis syndrome [Fatal]
  - Off label use [Unknown]
